FAERS Safety Report 12501729 (Version 3)
Quarter: 2016Q3

REPORT INFORMATION
  Report Type: Spontaneous
  Country: JP (occurrence: JP)
  Receive Date: 20160627
  Receipt Date: 20160719
  Transmission Date: 20161109
  Serious: Yes (Death, Disabling, Other)
  Sender: FDA-Public Use
  Company Number: JP-BAYER-2016-119072

PATIENT
  Age: 73 Year
  Sex: Female

DRUGS (9)
  1. GASTER [Concomitant]
     Active Substance: FAMOTIDINE
     Dosage: UNK
  2. GABALON [Concomitant]
     Active Substance: BACLOFEN
     Dosage: UNK
  3. BETAFERON [Suspect]
     Active Substance: INTERFERON BETA-1B
     Indication: MULTIPLE SCLEROSIS
     Dosage: 4 MIU, QOD
     Route: 058
     Dates: start: 20070822, end: 20070830
  4. TERNELIN [Concomitant]
     Active Substance: TIZANIDINE
     Dosage: UNK
     Route: 048
  5. PLETAAL [Concomitant]
     Active Substance: CILOSTAZOL
     Dosage: UNK
     Route: 048
  6. PREDONINE [Concomitant]
     Active Substance: PREDNISOLONE\PREDNISOLONE ACETATE\PREDNISOLONE SODIUM SUCCINATE
     Dosage: UNK
  7. BETAFERON [Suspect]
     Active Substance: INTERFERON BETA-1B
     Indication: MULTIPLE SCLEROSIS
     Dosage: 8 MIU, QOD
     Route: 058
     Dates: start: 20070901, end: 20070911
  8. TEGRETOL [Concomitant]
     Active Substance: CARBAMAZEPINE
     Dosage: UNK
     Route: 048
  9. NORITREN [Concomitant]
     Active Substance: NORTRIPTYLINE HYDROCHLORIDE
     Dosage: UNK
     Route: 048

REACTIONS (4)
  - Cardiac failure congestive [Fatal]
  - Neuromyelitis optica spectrum disorder [Not Recovered/Not Resolved]
  - Optic neuritis [Not Recovered/Not Resolved]
  - Myocardial infarction [None]

NARRATIVE: CASE EVENT DATE: 200710
